FAERS Safety Report 9964468 (Version 4)
Quarter: 2014Q2

REPORT INFORMATION
  Report Type: Report from Study
  Country: DE (occurrence: DE)
  Receive Date: 20140305
  Receipt Date: 20140423
  Transmission Date: 20141212
  Serious: Yes (Hospitalization)
  Sender: FDA-Public Use
  Company Number: DE-BAXTER-2014BAX009880

PATIENT
  Age: 15 Year
  Sex: 0
  Weight: 62 kg

DRUGS (5)
  1. ADVATE 2000 I.E. [Suspect]
     Indication: FACTOR VIII DEFICIENCY
     Route: 042
     Dates: end: 20140223
  2. ADVATE 2000 I.E. [Suspect]
     Indication: PROPHYLAXIS
  3. PARACETAMOL [Concomitant]
     Indication: PAIN
     Route: 048
     Dates: start: 20120103, end: 20120103
  4. PARACETAMOL [Concomitant]
     Route: 048
     Dates: start: 20120406, end: 20120406
  5. PARACETAMOL [Concomitant]
     Route: 048
     Dates: start: 20140120, end: 20140120

REACTIONS (1)
  - Nephrolithiasis [Recovered/Resolved]
